FAERS Safety Report 8618525-1 (Version None)
Quarter: 2012Q3

REPORT INFORMATION
  Report Type: 
  Country: None (occurrence: None)
  Receive Date: 20120810
  Receipt Date: 20120801
  Transmission Date: 20120928
  Serious: Yes (Death)
  Sender: FDA-Public Use
  Company Number: UTC-021114

PATIENT
  Age: 59 Year
  Sex: Male
  Weight: 126 kg

DRUGS (11)
  1. TYVASO [Suspect]
     Indication: PULMONARY ARTERIAL HYPERTENSION
     Dosage: 18-54 MCG (4 IN 1 D), INHALATION
     Route: 055
     Dates: start: 20120627
  2. TYVASO [Suspect]
     Indication: COR PULMONALE CHRONIC
     Dosage: 18-54 MCG (4 IN 1 D), INHALATION
     Route: 055
     Dates: start: 20120627
  3. TYVASO [Suspect]
     Indication: PH BODY FLUID
     Dosage: 18-54 MCG (4 IN 1 D), INHALATION
     Route: 055
     Dates: start: 20120627
  4. TYVASO [Suspect]
  5. OXYGEN (OXYGEN) [Concomitant]
  6. LISINOPRIL [Concomitant]
  7. VIAGRA [Concomitant]
  8. TRACLEER [Concomitant]
  9. REVATIO [Concomitant]
  10. ASPIRIN [Concomitant]
  11. SPIRIVA [Concomitant]

REACTIONS (1)
  - DYSPNOEA [None]
